FAERS Safety Report 16704132 (Version 1)
Quarter: 2019Q3

REPORT INFORMATION
  Report Type: Spontaneous
  Country: IT (occurrence: IT)
  Receive Date: 20190814
  Receipt Date: 20190814
  Transmission Date: 20191004
  Serious: Yes (Other)
  Sender: FDA-Public Use
  Company Number: IT-PFIZER INC-2019338697

PATIENT
  Age: 41 Year
  Sex: Male

DRUGS (2)
  1. TRETINOIN. [Suspect]
     Active Substance: TRETINOIN
     Indication: ACUTE PROMYELOCYTIC LEUKAEMIA
     Dosage: UNK (TREATED WITH AIDA 2000 PROTOCOL (INDUCTION THERAPY+AFTER COMPLETE REMISSION: 3 CONSOLIDATION C)
     Dates: start: 201407
  2. IDARUBICIN HCL [Suspect]
     Active Substance: IDARUBICIN HYDROCHLORIDE
     Indication: ACUTE PROMYELOCYTIC LEUKAEMIA
     Dosage: UNK (TREATED WITH AIDA 2000 PROTOCOL(INDUCTION THERAPY+AFTER COMPLETE REMISSION: 3 CONSOLIDATION CY)
     Dates: start: 201407

REACTIONS (1)
  - Acute myeloid leukaemia recurrent [Recovering/Resolving]

NARRATIVE: CASE EVENT DATE: 201502
